FAERS Safety Report 5906611-6 (Version None)
Quarter: 2008Q4

REPORT INFORMATION
  Report Type: 
  Country: None (occurrence: None)
  Receive Date: 20081002
  Receipt Date: 20080922
  Transmission Date: 20090506
  Serious: Yes (Other)
  Sender: FDA-Public Use
  Company Number: US-ELI_LILLY_AND_COMPANY-US200808006254

PATIENT
  Sex: Male
  Weight: 125.62 kg

DRUGS (6)
  1. BYETTA [Suspect]
     Dosage: 10 UG, 2/D
     Route: 058
     Dates: start: 20070601, end: 20070801
  2. BYETTA [Suspect]
     Dosage: 10 UG, 2/D
     Dates: start: 20070824, end: 20070901
  3. BYETTA [Suspect]
     Dosage: 5 UG, 2/D
     Dates: start: 20070901, end: 20080101
  4. METFORMIN HCL [Concomitant]
     Indication: DIABETES MELLITUS
     Dosage: 850 MG, 2/D
     Dates: start: 20060101
  5. AVALIDE [Concomitant]
     Indication: HYPERTENSION
     Dates: start: 20060101
  6. ADVICOR [Concomitant]
     Indication: DYSLIPIDAEMIA

REACTIONS (9)
  - BLOOD CREATININE INCREASED [None]
  - BLOOD GLUCOSE INCREASED [None]
  - BLOOD UREA INCREASED [None]
  - CONSTIPATION [None]
  - GASTRIC DISORDER [None]
  - GLYCOSYLATED HAEMOGLOBIN INCREASED [None]
  - PANCREATIC CYST [None]
  - PANCREATITIS CHRONIC [None]
  - WEIGHT DECREASED [None]
